FAERS Safety Report 25982672 (Version 1)
Quarter: 2025Q4

REPORT INFORMATION
  Report Type: Spontaneous
  Country: JP (occurrence: JP)
  Receive Date: 20251031
  Receipt Date: 20251031
  Transmission Date: 20260118
  Serious: Yes (Other)
  Sender: MICRO LABS LIMITED
  Company Number: JP-MICRO LABS LIMITED-ML2025-05585

PATIENT
  Sex: Female

DRUGS (3)
  1. AMOXICILLIN [Suspect]
     Active Substance: AMOXICILLIN
     Indication: Product used for unknown indication
     Dosage: SINGLE DOSE OF AMOXICILLIN DURING SECOND EPISODE
  2. AMOXICILLIN [Suspect]
     Active Substance: AMOXICILLIN
     Dosage: AT 23 MONTHS OF AGE, SHE UNDERWENT A DRUG PROVOCATION TEST WITH AMOXICILLIN. SEVEN HOURS AFTER THE F
  3. AMPICILLIN TRIHYDRATE [Concomitant]
     Active Substance: AMPICILLIN TRIHYDRATE
     Indication: Product used for unknown indication
     Dosage: 2 DAYS OF AMPICILLIN HYDRATE

REACTIONS (1)
  - Drug reaction with eosinophilia and systemic symptoms [Unknown]
